FAERS Safety Report 5097232-9 (Version None)
Quarter: 2006Q3

REPORT INFORMATION
  Report Type: 
  Country: None (occurrence: None)
  Receive Date: 20060906
  Receipt Date: 20060830
  Transmission Date: 20061208
  Serious: Yes (Other)
  Sender: FDA-Public Use
  Company Number: SE-ROCHE-461385

PATIENT
  Age: 11 Year
  Sex: Female

DRUGS (1)
  1. LARIAM [Suspect]
     Indication: MALARIA PROPHYLAXIS
     Dosage: DOSAGE REGIMEN REPORTED AS 3/4 TABLET.
     Route: 048
     Dates: start: 20060215

REACTIONS (2)
  - IRON DEFICIENCY [None]
  - LEUKOPENIA [None]
